FAERS Safety Report 6954688-1 (Version None)
Quarter: 2010Q3

REPORT INFORMATION
  Report Type: 
  Country: None (occurrence: None)
  Receive Date: 20100829
  Receipt Date: 20100820
  Transmission Date: 20110219
  Serious: No
  Sender: FDA-Public Use
  Company Number: US-US-EMD SERONO, INC.-232368J10USA

PATIENT
  Sex: Female
  Weight: 84 kg

DRUGS (5)
  1. REBIF [Suspect]
     Indication: MULTIPLE SCLEROSIS
     Route: 058
     Dates: start: 20081210, end: 20100201
  2. REBIF [Suspect]
     Route: 058
     Dates: start: 20100720, end: 20100101
  3. REBIF [Suspect]
     Route: 058
     Dates: start: 20100101, end: 20100101
  4. REBIF [Suspect]
     Route: 058
     Dates: start: 20100101
  5. ANTIDEPRESSANT [Concomitant]

REACTIONS (6)
  - ABDOMINAL PAIN [None]
  - HEPATIC CYST [None]
  - HEPATIC LESION [None]
  - INJECTION SITE REACTION [None]
  - NAUSEA [None]
  - PAIN [None]
